FAERS Safety Report 7047083-0 (Version None)
Quarter: 2010Q4

REPORT INFORMATION
  Report Type: 
  Country: None (occurrence: None)
  Receive Date: 20101015
  Receipt Date: 20101006
  Transmission Date: 20110411
  Serious: Yes (Other)
  Sender: FDA-Public Use
  Company Number: FR-ASTRAZENECA-2010SE47427

PATIENT
  Age: 84 Year
  Sex: Female

DRUGS (2)
  1. ATACAND [Suspect]
     Indication: HYPERTENSION
     Route: 048
  2. TEMERIT [Suspect]
     Indication: HYPERTENSION
     Route: 048

REACTIONS (1)
  - NEUROPATHY PERIPHERAL [None]
